FAERS Safety Report 18078344 (Version 1)
Quarter: 2020Q3

REPORT INFORMATION
  Report Type: Spontaneous
  Country: CN (occurrence: CN)
  Receive Date: 20200728
  Receipt Date: 20200728
  Transmission Date: 20201103
  Serious: No
  Sender: FDA-Public Use
  Company Number: CN-ALKEM LABORATORIES LIMITED-CN-ALKEM-2019-07287

PATIENT
  Age: 16 Year
  Sex: Male

DRUGS (3)
  1. BIFONAZOLE [Suspect]
     Active Substance: BIFONAZOLE
     Indication: SKIN PLAQUE
     Dosage: UNK
     Route: 065
  2. CEFUROXIME AXETIL. [Suspect]
     Active Substance: CEFUROXIME AXETIL
     Indication: SKIN PLAQUE
     Dosage: UNK
     Route: 042
  3. FUSIDIC ACID [Suspect]
     Active Substance: FUSIDIC ACID
     Indication: SKIN PLAQUE
     Dosage: UNK
     Route: 061

REACTIONS (1)
  - Drug ineffective [Unknown]
